FAERS Safety Report 8422024-X (Version None)
Quarter: 2012Q2

REPORT INFORMATION
  Report Type: 
  Country: None (occurrence: None)
  Receive Date: 20120608
  Receipt Date: 20120606
  Transmission Date: 20120825
  Serious: Yes (Death)
  Sender: FDA-Public Use
  Company Number: US-SANOFI-AVENTIS-2012SA040343

PATIENT

DRUGS (4)
  1. IRINOTECAN HCL [Suspect]
     Dosage: ON DAY 1 AND 8 OF EVERY 3 WEEKS CYCLE.
     Route: 065
  2. CISPLATIN [Suspect]
     Dosage: ON DAY 1 AND 8 OF EVERY 3 WEEKS CYCLE.
     Route: 065
  3. BEVACIZUMAB [Suspect]
     Dosage: ON DAY 1
     Route: 065
  4. DOCETAXEL [Suspect]
     Dosage: ON DAY 1 AND 8 OF EVERY 3 WEEKS CYCLE.
     Route: 065

REACTIONS (1)
  - OESOPHAGEAL HAEMORRHAGE [None]
